FAERS Safety Report 5068376-2 (Version None)
Quarter: 2006Q3

REPORT INFORMATION
  Report Type: 
  Country: None (occurrence: None)
  Receive Date: 20060802
  Receipt Date: 20050829
  Transmission Date: 20061208
  Serious: No
  Sender: FDA-Public Use
  Company Number: US-BRISTOL-MYERS SQUIBB COMPANY-13092960

PATIENT
  Age: 62 Year
  Sex: Female
  Weight: 77 kg

DRUGS (5)
  1. COUMADIN [Suspect]
     Indication: THROMBOSIS
     Route: 048
     Dates: start: 19850101
  2. XANAX [Concomitant]
  3. SONATA [Concomitant]
  4. MICRO-K [Concomitant]
  5. PREMARIN [Concomitant]

REACTIONS (2)
  - INTERNATIONAL NORMALISED RATIO FLUCTUATION [None]
  - MUSCLE SPASMS [None]
